FAERS Safety Report 12727163 (Version 1)
Quarter: 2016Q3

REPORT INFORMATION
  Report Type: Report from Study
  Country: US (occurrence: US)
  Receive Date: 20160909
  Receipt Date: 20160909
  Transmission Date: 20161109
  Serious: Yes (Hospitalization)
  Sender: FDA-Public Use
  Company Number: US-ABBVIE-16K-163-1718655-00

PATIENT
  Age: 53 Year
  Sex: Male
  Weight: 90.8 kg

DRUGS (3)
  1. HUMIRA [Suspect]
     Active Substance: ADALIMUMAB
     Indication: PSORIATIC ARTHROPATHY
     Route: 058
     Dates: start: 201406, end: 201601
  2. BENICAR [Concomitant]
     Active Substance: OLMESARTAN MEDOXOMIL
     Indication: PRODUCT USED FOR UNKNOWN INDICATION
  3. ADVICOR [Concomitant]
     Active Substance: LOVASTATIN\NIACIN
     Indication: PRODUCT USED FOR UNKNOWN INDICATION

REACTIONS (3)
  - Central nervous system lymphoma [Recovered/Resolved]
  - Cerebral haematoma [Unknown]
  - Hemiplegia [Recovered/Resolved]

NARRATIVE: CASE EVENT DATE: 201603
